FAERS Safety Report 8374985-5 (Version None)
Quarter: 2012Q2

REPORT INFORMATION
  Report Type: 
  Country: None (occurrence: None)
  Receive Date: 20120521
  Receipt Date: 20120504
  Transmission Date: 20120825
  Serious: Yes (Hospitalization)
  Sender: FDA-Public Use
  Company Number: CH-ROCHE-1065990

PATIENT
  Age: 57 Year
  Sex: Female

DRUGS (3)
  1. PROCORALAN [Concomitant]
     Route: 048
     Dates: start: 20100701
  2. MABTHERA [Suspect]
     Indication: B-CELL LYMPHOMA
     Dosage: LAST DOSE PRIOR TO SAE ON 15/SEP/2006
     Route: 042
     Dates: start: 20051207
  3. NIFEDIPINE [Concomitant]
     Route: 048
     Dates: start: 20100701

REACTIONS (3)
  - RESTRICTIVE PULMONARY DISEASE [None]
  - PNEUMONIA PNEUMOCOCCAL [None]
  - DYSPNOEA [None]
